FAERS Safety Report 18201237 (Version 1)
Quarter: 2020Q3

REPORT INFORMATION
  Report Type: Spontaneous
  Country: ES (occurrence: ES)
  Receive Date: 20200827
  Receipt Date: 20200827
  Transmission Date: 20201103
  Serious: Yes (Hospitalization)
  Sender: FDA-Public Use
  Company Number: ES-AUROBINDO-AUR-APL-2020-045107

PATIENT
  Age: 89 Year
  Sex: Female

DRUGS (2)
  1. LOSARTAN/HYDROCHLOROTHIAZIDE 50MG/12.5MG FILM?COATED TABLETS [Interacting]
     Active Substance: HYDROCHLOROTHIAZIDE\LOSARTAN
     Indication: HYPERTENSION
     Dosage: 1 DOSAGE FORM, ONCE A DAY (1 COMP A DAY)
     Route: 048
     Dates: start: 20200527, end: 20200809
  2. FUROSEMIDE. [Suspect]
     Active Substance: FUROSEMIDE
     Indication: HYPERTENSION
     Dosage: 40 MILLIGRAM, ONCE A DAY (1 COMP A DAY)
     Route: 048
     Dates: start: 20200304

REACTIONS (1)
  - Hyponatraemia [Recovered/Resolved]

NARRATIVE: CASE EVENT DATE: 20200809
